FAERS Safety Report 15263787 (Version 1)
Quarter: 2018Q3

REPORT INFORMATION
  Report Type: Report from Study
  Country: None (occurrence: CA)
  Receive Date: 20180810
  Receipt Date: 20180810
  Transmission Date: 20181010
  Serious: Yes (Other)
  Sender: FDA-Public Use
  Company Number: CA-ABBVIE-18K-028-2443548-00

PATIENT
  Age: 67 Year
  Sex: Male

DRUGS (1)
  1. HUMIRA [Suspect]
     Active Substance: ADALIMUMAB
     Indication: RHEUMATOID ARTHRITIS
     Route: 058
     Dates: start: 20180501, end: 2018

REACTIONS (4)
  - Monoplegia [Not Recovered/Not Resolved]
  - Injection site pain [Unknown]
  - Injection site pain [Unknown]
  - Monoplegia [Unknown]

NARRATIVE: CASE EVENT DATE: 201805
